FAERS Safety Report 15620560 (Version 1)
Quarter: 2018Q4

REPORT INFORMATION
  Report Type: Spontaneous
  Country: FR (occurrence: FR)
  Receive Date: 20181115
  Receipt Date: 20181115
  Transmission Date: 20190205
  Serious: Yes (Other)
  Sender: FDA-Public Use
  Company Number: FR-TEVA-2018-FR-976627

PATIENT
  Age: 63 Year
  Sex: Female

DRUGS (2)
  1. GEMCITABINE [Suspect]
     Active Substance: GEMCITABINE\GEMCITABINE HYDROCHLORIDE
     Indication: OVARIAN CANCER
     Dosage: ADMINISTERED ON DAYS 1 AND 8, FOR 6 CYCLES.
     Route: 065
     Dates: start: 201508, end: 201512
  2. CARBOPLATIN. [Suspect]
     Active Substance: CARBOPLATIN
     Indication: OVARIAN CANCER
     Dosage: AUC 4; SIX CYCLES ADMINISTERED ON DAYS 1 AND 8
     Route: 065
     Dates: start: 201508, end: 201512

REACTIONS (6)
  - Neutropenia [Unknown]
  - Neuropathy peripheral [Unknown]
  - Anaemia [Unknown]
  - Escherichia infection [Recovered/Resolved]
  - Drug hypersensitivity [Unknown]
  - Hepatotoxicity [Recovered/Resolved]
